FAERS Safety Report 6472479-5 (Version None)
Quarter: 2009Q4

REPORT INFORMATION
  Report Type: 
  Country: None (occurrence: None)
  Receive Date: 20091130
  Receipt Date: 20091104
  Transmission Date: 20100525
  Serious: Yes (Death)
  Sender: FDA-Public Use
  Company Number: 8041294

PATIENT
  Age: 24 Year
  Sex: Male

DRUGS (3)
  1. LEVETIRACETAM [Suspect]
     Dosage: 4500 MG /D
  2. LAMOTRIGINE [Concomitant]
  3. DIAZEPAM [Concomitant]

REACTIONS (1)
  - DEATH [None]
